FAERS Safety Report 7271678-2 (Version None)
Quarter: 2011Q1

REPORT INFORMATION
  Report Type: 
  Country: None (occurrence: None)
  Receive Date: 20110203
  Receipt Date: 20110127
  Transmission Date: 20110831
  Serious: No
  Sender: FDA-Public Use
  Company Number: AU-JNJFOC-20110200403

PATIENT
  Sex: Male

DRUGS (7)
  1. ASPIRIN [Concomitant]
     Route: 065
  2. DURAGESIC-100 [Suspect]
     Route: 062
  3. DURAGESIC-100 [Suspect]
     Route: 062
  4. DURAGESIC-100 [Suspect]
     Indication: OSTEOARTHRITIS
     Route: 062
  5. TRAMADOL [Concomitant]
     Indication: BREAKTHROUGH PAIN
     Route: 065
  6. LIPEX [Concomitant]
     Route: 065
  7. DURAGESIC-100 [Suspect]
     Route: 062

REACTIONS (3)
  - PRODUCT QUALITY ISSUE [None]
  - WRONG TECHNIQUE IN DRUG USAGE PROCESS [None]
  - DRUG INEFFECTIVE [None]
